FAERS Safety Report 5339518-6 (Version None)
Quarter: 2007Q3

REPORT INFORMATION
  Report Type: 
  Country: None (occurrence: None)
  Receive Date: 20070404
  Receipt Date: 20060303
  Transmission Date: 20080115
  Serious: Yes (Hospitalization, Other)
  Sender: FDA-Public Use
  Company Number: 2006022085

PATIENT
  Age: 42 Year
  Sex: Female
  Weight: 68.0396 kg

DRUGS (1)
  1. GEODON [Suspect]
     Indication: CORONARY ARTERY DISEASE
     Dosage: 20 MG (20 MG, 1 IN 1 D), INTRAVENOUS
     Route: 042
     Dates: start: 20060109, end: 20060110

REACTIONS (1)
  - NEUROLEPTIC MALIGNANT SYNDROME [None]
